FAERS Safety Report 9465598 (Version 1)
Quarter: 2013Q3

REPORT INFORMATION
  Report Type: Spontaneous
  Country: DK (occurrence: DK)
  Receive Date: 20130820
  Receipt Date: 20130820
  Transmission Date: 20140515
  Serious: Yes (Hospitalization)
  Sender: FDA-Public Use
  Company Number: DK-NOVOPROD-384772

PATIENT
  Age: 16 Year
  Sex: Female
  Weight: 71 kg

DRUGS (2)
  1. TRISEKVENS [Suspect]
     Indication: GROWTH RETARDATION
     Dosage: DAILY STRENGTH: VARY
     Route: 048
     Dates: start: 20130131, end: 20130311
  2. ESTRADIOL [Suspect]
     Indication: GROWTH RETARDATION
     Dosage: 2 MG, QD
     Route: 048
     Dates: start: 20130131, end: 20130311

REACTIONS (5)
  - Myelitis [Recovering/Resolving]
  - Multiple sclerosis [Unknown]
  - Hypoaesthesia [Recovered/Resolved]
  - Sensory disturbance [Recovered/Resolved]
  - Sensory loss [Recovering/Resolving]
